FAERS Safety Report 5803928-0 (Version None)
Quarter: 2008Q3

REPORT INFORMATION
  Report Type: 
  Country: None (occurrence: None)
  Receive Date: 20080708
  Receipt Date: 20080626
  Transmission Date: 20090109
  Serious: Yes (Other)
  Sender: FDA-Public Use
  Company Number: DE-PFIZER INC-2008054196

PATIENT
  Age: 72 Year
  Sex: Female

DRUGS (2)
  1. XALATAN [Suspect]
     Indication: GLAUCOMA
     Dosage: TEXT:ONE DROP PER EYE
     Route: 047
  2. AZOPT [Concomitant]
     Route: 047

REACTIONS (2)
  - INDURATION [None]
  - MYALGIA [None]
